FAERS Safety Report 16088236 (Version 3)
Quarter: 2019Q2

REPORT INFORMATION
  Report Type: Spontaneous
  Country: GB (occurrence: GB)
  Receive Date: 20190319
  Receipt Date: 20190508
  Transmission Date: 20190711
  Serious: Yes (Other)
  Sender: FDA-Public Use
  Company Number: GB-SA-2019SA071405

PATIENT
  Age: 36 Year
  Sex: Female

DRUGS (3)
  1. FINGOLIMOD. [Concomitant]
     Active Substance: FINGOLIMOD
     Indication: JC POLYOMAVIRUS TEST POSITIVE
     Route: 065
  2. LEMTRADA [Suspect]
     Active Substance: ALEMTUZUMAB
     Indication: RELAPSING-REMITTING MULTIPLE SCLEROSIS
     Dosage: UNK
     Route: 065
     Dates: start: 201605, end: 201605
  3. LEMTRADA [Suspect]
     Active Substance: ALEMTUZUMAB
     Dosage: UNK
     Route: 065
     Dates: start: 201705, end: 201705

REACTIONS (6)
  - Parvovirus B19 test positive [Unknown]
  - Blood disorder [Unknown]
  - Aplasia pure red cell [Unknown]
  - Haemoglobin decreased [Unknown]
  - Mean cell volume increased [Unknown]
  - Autoimmune haemolytic anaemia [Unknown]

NARRATIVE: CASE EVENT DATE: 2019
